FAERS Safety Report 7764442-9 (Version None)
Quarter: 2011Q3

REPORT INFORMATION
  Report Type: 
  Country: None (occurrence: None)
  Receive Date: 20110919
  Receipt Date: 20110905
  Transmission Date: 20111222
  Serious: Yes (Life-Threatening, Hospitalization)
  Sender: FDA-Public Use
  Company Number: 1000021444

PATIENT
  Age: 73 Year
  Sex: Female

DRUGS (8)
  1. SPIRIVA (TIOTROPIUM BROMIDE) (18 MICROGRAM) (TIOTROPIUM BROMIDE) [Concomitant]
  2. ROFLUMLAST (ROFLUMILAST) (TABLETS) [Suspect]
     Indication: CHRONIC OBSTRUCTIVE PULMONARY DISEASE
     Dosage: 1 DF (1 DOSAGE FORMS,1 IN 1 D),ORAL
     Route: 048
     Dates: start: 20110225, end: 20110517
  3. LISINOPRIL (LISINOPRIL) (5 MILLIGRAM) (LISINOPRIL) [Concomitant]
  4. HYDROCHLOROTHIAZIDE (HYDROCHLOROTHIAZIDE) (25 MILLIGRAM) (HYDROCHLOROT [Concomitant]
  5. HOMEOPATHIC MEDICATION (HOMEOPATHIC MEDICATION) (HOMEOPATHIC MEDICATIO [Concomitant]
  6. NUX VOMICA (NUX VOMICA HOMACCORD) [Suspect]
     Dates: start: 20110517
  7. ESOMEPRAZOLE SODIUM [Concomitant]
  8. ATMADISC MITE [Concomitant]

REACTIONS (2)
  - ANGIOEDEMA [None]
  - HOMEOPATHY [None]
